FAERS Safety Report 8160641-5 (Version None)
Quarter: 2012Q1

REPORT INFORMATION
  Report Type: 
  Country: None (occurrence: None)
  Receive Date: 20120223
  Receipt Date: 20120213
  Transmission Date: 20120608
  Serious: Yes (Disabling)
  Sender: FDA-Public Use
  Company Number: JP-ALLERGAN-1007741US

PATIENT
  Age: 62 Year
  Sex: Male

DRUGS (4)
  1. ADONA [Concomitant]
     Dosage: UNK
     Dates: start: 20090715
  2. LUMIGAN [Suspect]
     Indication: OPEN ANGLE GLAUCOMA
     Dosage: 1 GTT, QD
     Route: 047
     Dates: start: 20091121, end: 20100724
  3. CARNACULIN [Concomitant]
     Dosage: UNK
     Dates: start: 20090715
  4. LUMIGAN [Suspect]
     Indication: GLAUCOMA
     Dosage: 1 GTT, QD
     Route: 047
     Dates: start: 20091121, end: 20100128

REACTIONS (2)
  - CORNEAL EROSION [None]
  - VITREOUS HAEMORRHAGE [None]
